FAERS Safety Report 5773595-3 (Version None)
Quarter: 2008Q2

REPORT INFORMATION
  Report Type: 
  Country: None (occurrence: None)
  Receive Date: 20080616
  Receipt Date: 20080602
  Transmission Date: 20081010
  Serious: Yes (Hospitalization)
  Sender: FDA-Public Use
  Company Number: FR-ROCHE-568163

PATIENT
  Sex: Female

DRUGS (2)
  1. CELLCEPT [Suspect]
     Indication: SCLERODERMA
     Route: 048
     Dates: start: 20050201
  2. CORTANCYL [Suspect]
     Indication: SCLERODERMA
     Route: 048

REACTIONS (1)
  - TENOSYNOVITIS [None]
